FAERS Safety Report 8106252-9 (Version None)
Quarter: 2012Q1

REPORT INFORMATION
  Report Type: 
  Country: None (occurrence: None)
  Receive Date: 20120130
  Receipt Date: 20120116
  Transmission Date: 20120608
  Serious: Yes (Hospitalization, Other)
  Sender: FDA-Public Use
  Company Number: 2011P1015263

PATIENT
  Age: 56 Year
  Sex: Female
  Weight: 54.4316 kg

DRUGS (13)
  1. HYDROMORPHONE HCL [Concomitant]
  2. FENTANYL-75 [Suspect]
     Indication: RADIATION ASSOCIATED PAIN
     Dosage: 1 PATCH;EVERY 3 DAYS;TDER
     Route: 062
     Dates: start: 20110901, end: 20111213
  3. FENTANYL-75 [Suspect]
     Indication: OSTEONECROSIS OF JAW
     Dosage: 1 PATCH;EVERY 3 DAYS;TDER
     Route: 062
     Dates: start: 20110901, end: 20111213
  4. FENTANYL-75 [Suspect]
     Indication: ARTERIAL DISORDER
     Dosage: 1 PATCH;EVERY 3 DAYS;TDER
     Route: 062
     Dates: start: 20110901, end: 20111213
  5. FENTANYL-100 [Suspect]
     Indication: OSTEONECROSIS OF JAW
     Dosage: 1 PATCH; EVERY 3 DAYS; TDER
     Route: 062
     Dates: start: 20111213
  6. FENTANYL-100 [Suspect]
     Indication: ARTERIAL DISORDER
     Dosage: 1 PATCH; EVERY 3 DAYS; TDER
     Route: 062
     Dates: start: 20111213
  7. FENTANYL-100 [Suspect]
     Indication: RADIATION ASSOCIATED PAIN
     Dosage: 1 PATCH; EVERY 3 DAYS; TDER
     Route: 062
     Dates: start: 20111213
  8. BLOOD PRESSURE MEDICATIONS (UNSPECIFIED) [Concomitant]
  9. FENTANYL-100 [Suspect]
  10. SEROQUEL [Concomitant]
  11. FENTANYL-12 [Suspect]
     Indication: OSTEONECROSIS OF JAW
     Dosage: 1 PATCH; EVERY 3 DAYS; TDER
     Route: 062
     Dates: start: 20111001, end: 20111213
  12. FENTANYL-12 [Suspect]
     Indication: RADIATION ASSOCIATED PAIN
     Dosage: 1 PATCH; EVERY 3 DAYS; TDER
     Route: 062
     Dates: start: 20111001, end: 20111213
  13. FENTANYL-12 [Suspect]
     Indication: ARTERIAL DISORDER
     Dosage: 1 PATCH; EVERY 3 DAYS; TDER
     Route: 062
     Dates: start: 20111001, end: 20111213

REACTIONS (14)
  - INADEQUATE ANALGESIA [None]
  - BREAKTHROUGH PAIN [None]
  - CAROTID ARTERY STENOSIS [None]
  - CEREBRAL INFARCTION [None]
  - PRODUCT PHYSICAL ISSUE [None]
  - HAEMORRHAGIC TRANSFORMATION STROKE [None]
  - VERTEBRAL ARTERY STENOSIS [None]
  - PNEUMONIA ASPIRATION [None]
  - PRODUCT ADHESION ISSUE [None]
  - HAEMOGLOBIN DECREASED [None]
  - CORTICAL LAMINAR NECROSIS [None]
  - HAEMATOCRIT DECREASED [None]
  - PRODUCT SUBSTITUTION ISSUE [None]
  - PLATELET COUNT DECREASED [None]
